FAERS Safety Report 9305144 (Version 1)
Quarter: 2013Q2

REPORT INFORMATION
  Report Type: Report from Study
  Country: MX (occurrence: MX)
  Receive Date: 20130523
  Receipt Date: 20130523
  Transmission Date: 20140414
  Serious: Yes (Other)
  Sender: FDA-Public Use
  Company Number: PHHY2012MX061474

PATIENT
  Age: 67 Year
  Sex: Female

DRUGS (2)
  1. FEMARA [Suspect]
     Indication: BREAST CANCER
     Dosage: 1 DF (2.5 MG), DAILY
     Route: 048
     Dates: start: 201105
  2. FEMARA [Suspect]
     Dosage: 1 DF (2.5 MG), DAILY
     Route: 048
     Dates: start: 201206

REACTIONS (3)
  - Infection [Not Recovered/Not Resolved]
  - Movement disorder [Not Recovered/Not Resolved]
  - Malaise [Not Recovered/Not Resolved]
